FAERS Safety Report 23311309 (Version 1)
Quarter: 2023Q4

REPORT INFORMATION
  Report Type: Spontaneous
  Country: BE (occurrence: BE)
  Receive Date: 20231219
  Receipt Date: 20231219
  Transmission Date: 20240110
  Serious: Yes (Hospitalization, Other)
  Sender: FDA-Public Use
  Company Number: None

PATIENT
  Age: 64 Year
  Sex: Male

DRUGS (16)
  1. EVEROLIMUS [Suspect]
     Active Substance: EVEROLIMUS
     Indication: Colitis
     Dosage: 0.5 MILLIGRAM, BID
     Route: 065
  2. EVEROLIMUS [Suspect]
     Active Substance: EVEROLIMUS
     Indication: Graft versus host disease
     Dosage: UNK, DOSE REDUCED
     Route: 065
  3. MYCOPHENOLATE MOFETIL [Suspect]
     Active Substance: MYCOPHENOLATE MOFETIL
     Indication: Prophylaxis against graft versus host disease
     Dosage: UNK
     Route: 065
  4. MYCOPHENOLATE MOFETIL [Suspect]
     Active Substance: MYCOPHENOLATE MOFETIL
     Indication: Immunosuppressant drug therapy
     Dosage: UNK, RECHALLENGED DOSE
     Route: 065
  5. MYCOPHENOLATE MOFETIL [Suspect]
     Active Substance: MYCOPHENOLATE MOFETIL
     Dosage: UNK, DOSE REDUCED
     Route: 065
  6. TACROLIMUS [Suspect]
     Active Substance: TACROLIMUS
     Indication: Acute graft versus host disease
     Dosage: UNK
     Route: 065
     Dates: start: 20200313
  7. TACROLIMUS [Suspect]
     Active Substance: TACROLIMUS
     Indication: Immunosuppressant drug therapy
     Dosage: UNK, RECHALLENGED DOSE
     Route: 065
  8. TACROLIMUS [Suspect]
     Active Substance: TACROLIMUS
     Indication: Prophylaxis against graft versus host disease
     Dosage: UNK, DOSE REDUCED
     Route: 065
  9. METHYLPREDNISOLONE [Suspect]
     Active Substance: METHYLPREDNISOLONE
     Indication: Immunosuppressant drug therapy
     Dosage: 2 MILLIGRAM/KILOGRAM, QD
     Route: 065
  10. METHYLPREDNISOLONE [Suspect]
     Active Substance: METHYLPREDNISOLONE
     Indication: Acute graft versus host disease
     Dosage: 4 MILLIGRAM ( RESUMED ON DAY 96)
     Route: 065
  11. METHYLPREDNISOLONE [Suspect]
     Active Substance: METHYLPREDNISOLONE
     Dosage: UNK, DOSE REDUCED
     Route: 065
  12. BECLOMETHASONE [Suspect]
     Active Substance: BECLOMETHASONE
     Indication: Acute graft versus host disease
     Dosage: UNK
     Route: 061
  13. BECLOMETHASONE [Suspect]
     Active Substance: BECLOMETHASONE
     Dosage: UNK, DOSE REDUCED
     Route: 061
  14. THYMOGLOBULIN [Suspect]
     Active Substance: LAPINE T-LYMPHOCYTE IMMUNE GLOBULIN
     Indication: Prophylaxis against graft versus host disease
     Dosage: UNK
     Route: 065
     Dates: start: 20200313
  15. THYMOGLOBULIN [Suspect]
     Active Substance: LAPINE T-LYMPHOCYTE IMMUNE GLOBULIN
     Indication: Immunosuppressant drug therapy
     Dosage: UNK
     Route: 065
  16. ETANERCEPT [Concomitant]
     Active Substance: ETANERCEPT
     Indication: Acute graft versus host disease
     Dosage: 25 MILLIGRAM
     Route: 065

REACTIONS (5)
  - Colitis [Recovering/Resolving]
  - Cryptosporidiosis infection [Recovered/Resolved]
  - Cytomegalovirus infection reactivation [Recovering/Resolving]
  - Acute graft versus host disease [Recovering/Resolving]
  - Graft versus host disease [Recovering/Resolving]

NARRATIVE: CASE EVENT DATE: 20200101
